FAERS Safety Report 6376586-7 (Version None)
Quarter: 2009Q3

REPORT INFORMATION
  Report Type: 
  Country: None (occurrence: None)
  Receive Date: 20090925
  Receipt Date: 20090915
  Transmission Date: 20100115
  Serious: Yes (Hospitalization, Other)
  Sender: FDA-Public Use
  Company Number: US-PFIZER INC-2009269696

PATIENT

DRUGS (3)
  1. FLAGYL [Suspect]
  2. CLEOCIN [Suspect]
  3. NYSTATIN [Concomitant]

REACTIONS (11)
  - BLISTER [None]
  - BLOOD URINE PRESENT [None]
  - CANDIDIASIS [None]
  - DROOLING [None]
  - DYSGEUSIA [None]
  - HAEMORRHAGE [None]
  - HYPERSENSITIVITY [None]
  - HYPERTENSION [None]
  - PRURITUS [None]
  - RASH [None]
  - TOOTH DISCOLOURATION [None]
